FAERS Safety Report 9691336 (Version 2)
Quarter: 2014Q1

REPORT INFORMATION
  Report Type: Spontaneous
  Country: US (occurrence: US)
  Receive Date: 20131115
  Receipt Date: 20140107
  Transmission Date: 20141002
  Serious: Yes (Hospitalization)
  Sender: FDA-Public Use
  Company Number: US-MYLANLABS-2013S1025467

PATIENT
  Age: 66 Year
  Sex: Female
  Weight: 90.72 kg

DRUGS (3)
  1. EPIPEN 2-PAK [Suspect]
     Indication: HYPERSENSITIVITY
     Route: 030
     Dates: start: 20130726
  2. LISINOPRIL [Concomitant]
     Indication: BLOOD PRESSURE INCREASED
     Dosage: TOOK FOR YEARS
     Route: 048
     Dates: end: 20131104
  3. MOBIC [Concomitant]
     Indication: ARTHRITIS

REACTIONS (2)
  - Device failure [Recovered/Resolved]
  - Drug dose omission [Recovered/Resolved]
